FAERS Safety Report 5195772-5 (Version None)
Quarter: 2006Q4

REPORT INFORMATION
  Report Type: 
  Country: None (occurrence: None)
  Receive Date: 20061227
  Receipt Date: 20061227
  Transmission Date: 20070319
  Serious: No
  Sender: FDA-Public Use
  Company Number: None

PATIENT
  Age: 80 Year
  Sex: Male
  Weight: 122.4712 kg

DRUGS (1)
  1. LIDOCAINE HYDROCHLORIDE INJ [Suspect]
     Indication: VENTRICULAR TACHYCARDIA
     Dates: start: 20061124

REACTIONS (2)
  - INCORRECT DOSE ADMINISTERED [None]
  - MEDICATION ERROR [None]
